FAERS Safety Report 17859493 (Version 2)
Quarter: 2020Q3

REPORT INFORMATION
  Report Type: Spontaneous
  Country: US (occurrence: US)
  Receive Date: 20200604
  Receipt Date: 20200707
  Transmission Date: 20201103
  Serious: No
  Sender: FDA-Public Use
  Company Number: US-MYLANLABS-2020M1053295

PATIENT
  Sex: Male

DRUGS (1)
  1. FLURAZEPAM HYDROCHLORIDE CAPSULES, USP [Suspect]
     Active Substance: FLURAZEPAM HYDROCHLORIDE
     Indication: INSOMNIA
     Dosage: UNK

REACTIONS (1)
  - Therapeutic product effect decreased [Recovering/Resolving]
